FAERS Safety Report 8888791 (Version 2)
Quarter: 2012Q4

REPORT INFORMATION
  Report Type: 
  Country: JP (occurrence: JP)
  Receive Date: 20121106
  Receipt Date: 20121204
  Transmission Date: 20130627
  Serious: Yes (Hospitalization)
  Sender: FDA-Public Use
  Company Number: JP-JNJFOC-20121102427

PATIENT
  Age: 80 Year
  Sex: Female
  Weight: 40 kg

DRUGS (6)
  1. XARELTO [Suspect]
     Indication: CEREBROVASCULAR ACCIDENT PROPHYLAXIS
     Route: 048
     Dates: start: 20120820, end: 20121015
  2. XARELTO [Suspect]
     Indication: ATRIAL FIBRILLATION
     Route: 048
     Dates: start: 20120820, end: 20121015
  3. PREMINENT [Concomitant]
     Route: 048
  4. SUNRYTHM [Concomitant]
     Indication: ATRIAL FIBRILLATION
     Route: 048
     Dates: start: 20120713
  5. RIZE [Concomitant]
     Route: 048
  6. TAKEPRON [Concomitant]
     Route: 048

REACTIONS (2)
  - Cerebellar infarction [Recovered/Resolved with Sequelae]
  - Haematuria [Recovering/Resolving]
